FAERS Safety Report 12909711 (Version 1)
Quarter: 2016Q4

REPORT INFORMATION
  Report Type: Other
  Country: GB (occurrence: TW)
  Receive Date: 20161104
  Receipt Date: 20161104
  Transmission Date: 20170207
  Serious: Yes (Hospitalization, Other)
  Sender: FDA-Public Use
  Company Number: TW-CLARIS PHARMASERVICES-1059213

PATIENT
  Age: 54 Year
  Sex: Female

DRUGS (2)
  1. FLUCONAZOLE. [Suspect]
     Active Substance: FLUCONAZOLE
     Indication: FUNGAL CYSTITIS
     Route: 048
  2. COLCHICINE. [Suspect]
     Active Substance: COLCHICINE
     Route: 048

REACTIONS (2)
  - Myopathy [Recovered/Resolved]
  - Drug interaction [Recovered/Resolved]
